FAERS Safety Report 6228652-4 (Version None)
Quarter: 2009Q2

REPORT INFORMATION
  Report Type: 
  Country: None (occurrence: None)
  Receive Date: 20090612
  Receipt Date: 20090602
  Transmission Date: 20091009
  Serious: Yes (Death, Life-Threatening, Hospitalization)
  Sender: FDA-Public Use
  Company Number: JP-SANOFI-SYNTHELABO-F01200900251

PATIENT
  Sex: Male
  Weight: 52 kg

DRUGS (10)
  1. GOSHA-JINKI-GAN [Concomitant]
     Dosage: 22.5 G
     Route: 048
     Dates: start: 20080527, end: 20080624
  2. BAKTAR [Concomitant]
     Dosage: UNK
     Route: 048
     Dates: start: 20080527, end: 20080610
  3. UBRETID [Concomitant]
     Dosage: 10 MG
     Route: 048
     Dates: start: 20080527, end: 20080624
  4. HARNAL [Concomitant]
     Dosage: 0.2 MG
     Route: 048
     Dates: start: 20080527, end: 20080624
  5. MYONAL [Concomitant]
     Dosage: 150 MG
     Route: 048
     Dates: start: 20080530, end: 20080624
  6. LANSOPRAZOLE [Concomitant]
     Indication: PEPTIC ULCER
     Dosage: 15 MG
     Route: 048
     Dates: start: 20080424, end: 20080624
  7. SELBEX [Concomitant]
     Dosage: 150 MG
     Route: 048
     Dates: start: 20080325, end: 20080624
  8. MAGNESIUM OXIDE [Concomitant]
     Indication: CONSTIPATION
     Dosage: 0.5 G
     Route: 048
     Dates: start: 20080409, end: 20080624
  9. PANTOSIN [Concomitant]
     Indication: CONSTIPATION
     Dosage: 1 G
     Route: 048
     Dates: start: 20080409, end: 20080624
  10. CLOPIDOGREL [Suspect]
     Indication: LACUNAR INFARCTION
     Route: 048
     Dates: start: 20080404, end: 20080624

REACTIONS (9)
  - ACUTE RESPIRATORY FAILURE [None]
  - BLOOD CREATININE INCREASED [None]
  - BLOOD UREA INCREASED [None]
  - CYSTITIS NONINFECTIVE [None]
  - DECREASED APPETITE [None]
  - PNEUMONIA [None]
  - RENAL FAILURE [None]
  - URINARY RETENTION [None]
  - WHITE BLOOD CELL COUNT INCREASED [None]
